FAERS Safety Report 5472959-5 (Version None)
Quarter: 2007Q4

REPORT INFORMATION
  Report Type: 
  Country: None (occurrence: None)
  Receive Date: 20071001
  Receipt Date: 20070105
  Transmission Date: 20080405
  Serious: No
  Sender: FDA-Public Use
  Company Number: US-ASTRAZENECA-2007UW00282

PATIENT
  Age: 70 Year
  Sex: Female

DRUGS (3)
  1. ARIMIDEX [Suspect]
     Indication: BREAST CANCER
     Route: 048
     Dates: start: 20061101
  2. MAXZIDE [Concomitant]
  3. BENICAR [Concomitant]

REACTIONS (2)
  - HEADACHE [None]
  - PHOTOPSIA [None]
